FAERS Safety Report 5431571-4 (Version None)
Quarter: 2007Q3

REPORT INFORMATION
  Report Type: 
  Country: None (occurrence: None)
  Receive Date: 20070830
  Receipt Date: 20070829
  Transmission Date: 20080115
  Serious: Yes (Hospitalization)
  Sender: FDA-Public Use
  Company Number: GB-BAYER-200710859BNE

PATIENT
  Age: 33 Year
  Sex: Female
  Weight: 49 kg

DRUGS (8)
  1. SORAFENIB [Suspect]
     Indication: THYROID CANCER METASTATIC
     Dosage: TOTAL DAILY DOSE: 800 MG
     Dates: start: 20070725, end: 20070806
  2. ALFACALCIDOL [Concomitant]
     Indication: HYPOCALCAEMIA
     Route: 048
  3. LEVOTHYROXINE SODIUM [Concomitant]
     Route: 048
  4. HYDROCORTISONE [Concomitant]
     Indication: ADRENALECTOMY
     Route: 048
  5. ASPIRIN [Concomitant]
     Indication: THROMBOCYTHAEMIA
     Route: 048
  6. CODEINE SUL TAB [Concomitant]
     Indication: DIARRHOEA
  7. LANSOPRAZOLE [Concomitant]
     Indication: GASTRITIS
  8. ALFA-CALCIFEROL [Concomitant]
     Indication: HYPOPARATHYROIDISM

REACTIONS (1)
  - HYPOCALCAEMIA [None]
